FAERS Safety Report 5070318-0 (Version None)
Quarter: 2006Q3

REPORT INFORMATION
  Report Type: 
  Country: None (occurrence: None)
  Receive Date: 20060802
  Receipt Date: 20060307
  Transmission Date: 20061208
  Serious: Yes (Death, Life-Threatening)
  Sender: FDA-Public Use
  Company Number: OMPQ-NO-0602S-0096

PATIENT
  Age: 69 Year
  Sex: Male

DRUGS (8)
  1. OMNIPAQUE 140 [Suspect]
     Indication: SCLEROSING ENCAPSULATING PERITONITIS
     Dosage: 82 ML (SINGLE DOSE) I.V.
     Route: 042
     Dates: start: 20060207, end: 20060207
  2. PREDNISOLONE (PREDONINE) [Concomitant]
  3. LOSARTAN POTASSIUM (NU-LOTAN) [Concomitant]
  4. REBAMIPIDE (MUCOSTA) [Concomitant]
  5. LEVOGLUTAMIDE, SODIUM GUALENATE (MARZULENE-S) [Concomitant]
  6. CALCIUM CARBONATE (CALTAN) [Concomitant]
  7. DOXASOZIN MESILATE (CARDENALIN) [Concomitant]
  8. GLUCOSE INJECTION (GLU 50) [Concomitant]

REACTIONS (7)
  - ANAPHYLACTOID SHOCK [None]
  - DYSPNOEA [None]
  - LOSS OF CONSCIOUSNESS [None]
  - MYOCARDIAL INFARCTION [None]
  - NAUSEA [None]
  - PNEUMOTHORAX [None]
  - STRIDOR [None]
